FAERS Safety Report 5283539-9 (Version None)
Quarter: 2007Q1

REPORT INFORMATION
  Report Type: 
  Country: None (occurrence: None)
  Receive Date: 20070329
  Receipt Date: 20070329
  Transmission Date: 20070707
  Serious: Yes (Hospitalization)
  Sender: FDA-Public Use
  Company Number: None

PATIENT
  Age: 81 Year
  Sex: Male

DRUGS (21)
  1. ROZEREM [Suspect]
     Indication: INSOMNIA
     Dosage: 8 MG QHS PO
     Route: 048
     Dates: start: 20070310, end: 20070313
  2. DOCUSATE [Concomitant]
  3. FUROSEMIDE [Concomitant]
  4. ASPIRIN [Concomitant]
  5. FERROUS SULFATE [Concomitant]
  6. ZOCOR [Concomitant]
  7. PRILOSEC [Concomitant]
  8. COUMADIN [Concomitant]
  9. DOXYCYCLINE [Concomitant]
  10. CLONAZEPAM [Concomitant]
  11. CARVEDILOL [Concomitant]
  12. FLOMAX [Concomitant]
  13. DIOVAN [Concomitant]
  14. LANTUS [Concomitant]
  15. SPRINOLACTONE [Concomitant]
  16. POTASSIUM CHLORIDE [Concomitant]
  17. M.V.I. [Concomitant]
  18. ZYRTEC [Concomitant]
  19. NOVOLOG [Concomitant]
  20. LEVAQUIN [Concomitant]
  21. VICODIN [Concomitant]

REACTIONS (3)
  - DYSKINESIA [None]
  - DYSTONIA [None]
  - PARTIAL SEIZURES [None]
